FAERS Safety Report 7572272-6 (Version None)
Quarter: 2011Q2

REPORT INFORMATION
  Report Type: 
  Country: None (occurrence: None)
  Receive Date: 20110624
  Receipt Date: 20110616
  Transmission Date: 20111010
  Serious: Yes (Other)
  Sender: FDA-Public Use
  Company Number: PHHY2011HR53127

PATIENT
  Age: 54 Year
  Sex: Female

DRUGS (1)
  1. LESCOL XL [Suspect]
     Indication: LIPID METABOLISM DISORDER
     Dosage: 80 MG, QD
     Route: 048
     Dates: start: 20060101

REACTIONS (1)
  - SWELLING FACE [None]
